FAERS Safety Report 5484332-4 (Version None)
Quarter: 2007Q4

REPORT INFORMATION
  Report Type: 
  Country: None (occurrence: None)
  Receive Date: 20071012
  Receipt Date: 20070911
  Transmission Date: 20080405
  Serious: Yes (Hospitalization)
  Sender: FDA-Public Use
  Company Number: US-BOEHRINGER INGELHEIM PHARMACEUTICALS, INC.-2005-BP-13969BP

PATIENT
  Sex: Female

DRUGS (41)
  1. MIRAPEX [Suspect]
     Indication: RESTLESS LEGS SYNDROME
     Dosage: 0.5 MG/2/DAY
     Dates: start: 20030925, end: 20050301
  2. MIRAPEX [Suspect]
     Dates: start: 20030610, end: 20030925
  3. MIRAPEX [Suspect]
     Dates: start: 20020430, end: 20030610
  4. MIRAPEX [Suspect]
     Dates: start: 20050301, end: 20050405
  5. XANAX [Concomitant]
     Indication: ANXIETY
     Route: 048
     Dates: start: 20040901
  6. XANAX [Concomitant]
     Indication: PHOBIA OF FLYING
  7. VITAMIN B-12 [Concomitant]
     Route: 030
     Dates: start: 20020320
  8. DELESTROGEN [Concomitant]
     Indication: HORMONE REPLACEMENT THERAPY
     Route: 030
     Dates: start: 19971101, end: 20020320
  9. DELESTROGEN [Concomitant]
     Indication: HOT FLUSH
     Route: 030
     Dates: start: 20030721
  10. DELESTROGEN [Concomitant]
     Route: 030
     Dates: start: 20030821
  11. DELESTROGEN [Concomitant]
     Route: 030
     Dates: start: 20040101
  12. ESTRATEST [Concomitant]
     Dates: start: 20020412
  13. AMBIEN [Concomitant]
     Indication: RESTLESS LEGS SYNDROME
     Dates: start: 20001002
  14. NEURONTIN [Concomitant]
     Indication: RESTLESS LEGS SYNDROME
     Dates: start: 20010503
  15. SINEMET [Concomitant]
     Indication: RESTLESS LEGS SYNDROME
     Dates: start: 20000911
  16. SINEMET [Concomitant]
     Dates: start: 20010201
  17. SINEMET [Concomitant]
     Dates: start: 20010906
  18. SINEMET [Concomitant]
     Dates: start: 20020401
  19. KLONOPIN [Concomitant]
     Indication: RESTLESS LEGS SYNDROME
     Dates: start: 20050317, end: 20050701
  20. KLONOPIN [Concomitant]
  21. CYCLOBENZAPRINE HCL [Concomitant]
     Dates: start: 20011030
  22. SKELASIN [Concomitant]
     Dates: start: 20021007
  23. ALPRAZOLAM [Concomitant]
     Dates: start: 20030509
  24. FLONASE [Concomitant]
     Dates: start: 20030509
  25. DETROL LA [Concomitant]
     Dates: start: 20041001
  26. NAPROSYN [Concomitant]
     Indication: BACK PAIN
     Dates: start: 20010601
  27. FLEXERIL [Concomitant]
     Indication: BACK PAIN
     Dates: start: 20010601
  28. ESTRATEST [Concomitant]
  29. CEPHALEXIN [Concomitant]
  30. TRIAMCIN / ORA PST [Concomitant]
  31. DEXAMETHASONE 0.5MG TAB [Concomitant]
  32. AMOXICILLIN [Concomitant]
  33. HYDROCODONE BITARTRATE AND ACETAMINOPHEN [Concomitant]
  34. LEXAPRO [Concomitant]
     Dates: start: 20050401
  35. DEPO-ESTRADIOL [Concomitant]
     Route: 030
     Dates: start: 20040601
  36. ZOLOFT [Concomitant]
     Dates: start: 20050301
  37. EFFEXOR [Concomitant]
  38. REQUIP [Concomitant]
  39. SINEMET CR [Concomitant]
     Indication: RESTLESS LEGS SYNDROME
     Dates: start: 20010901
  40. SINEMET CR [Concomitant]
     Dates: start: 20011101
  41. SINEMET CR [Concomitant]
     Dates: start: 20050801

REACTIONS (13)
  - ANHEDONIA [None]
  - ANXIETY [None]
  - BEREAVEMENT REACTION [None]
  - DEPENDENCE [None]
  - DEPRESSION [None]
  - ECONOMIC PROBLEM [None]
  - EMOTIONAL DISTRESS [None]
  - FEAR [None]
  - FEELING GUILTY [None]
  - OBSESSIVE-COMPULSIVE DISORDER [None]
  - PAIN [None]
  - PATHOLOGICAL GAMBLING [None]
  - ROAD TRAFFIC ACCIDENT [None]
